FAERS Safety Report 10432828 (Version 1)
Quarter: 2014Q3

REPORT INFORMATION
  Report Type: Spontaneous
  Country: NO (occurrence: None)
  Receive Date: 20140903
  Receipt Date: 20140903
  Transmission Date: 20150326
  Serious: Yes (Hospitalization)
  Sender: FDA-Public Use
  Company Number: ABR_01791_2014

PATIENT
  Sex: Female
  Weight: 80 kg

DRUGS (8)
  1. THIAMINE [Concomitant]
     Active Substance: THIAMINE
  2. VITAMIN B COMPLEX [Concomitant]
     Active Substance: CYANOCOBALAMIN\DEXPANTHENOL\NIACINAMIDE\PYRIDOXINE HYDROCHLORIDE\RIBOFLAVIN 5^-PHOSPHATE SODIUM\THIAMINE HYDROCHLORIDE\VITAMIN B COMPLEX
  3. KETAMINE (KETAMINE) [Suspect]
     Active Substance: KETAMINE
     Indication: SEDATION
     Dosage: 250 MG, TOTAL, INTRAVENOUS BOLUS
     Route: 040
  4. LAMOTRIGINE. [Suspect]
     Active Substance: LAMOTRIGINE
     Indication: BIPOLAR DISORDER
     Dosage: (DF, NOT THE PRESCRIBED AMOUNT), (2 DF BID)
  5. FLUOXETINE [Concomitant]
     Active Substance: FLUOXETINE\FLUOXETINE HYDROCHLORIDE
  6. CARBAMAZEPINE. [Concomitant]
     Active Substance: CARBAMAZEPINE
  7. SUCCINYLCHOLINE [Concomitant]
     Active Substance: SUCCINYLCHOLINE
  8. PROPOFOL. [Concomitant]
     Active Substance: PROPOFOL

REACTIONS (11)
  - Ataxia [None]
  - Nystagmus [None]
  - Convulsion [None]
  - Aggression [None]
  - Tachycardia [None]
  - Toxicity to various agents [None]
  - Agitation [None]
  - Coma [None]
  - Intentional overdose [None]
  - Treatment failure [None]
  - Euphoric mood [None]
